FAERS Safety Report 6100900-0 (Version None)
Quarter: 2009Q1

REPORT INFORMATION
  Report Type: 
  Country: None (occurrence: None)
  Receive Date: 20090304
  Receipt Date: 20090226
  Transmission Date: 20090719
  Serious: Yes (Other)
  Sender: FDA-Public Use
  Company Number: US-JNJFOC-20090300109

PATIENT
  Sex: Male
  Weight: 89.36 kg

DRUGS (3)
  1. LEVAQUIN [Suspect]
     Indication: CELLULITIS
     Route: 048
  2. LEVAQUIN [Suspect]
     Route: 048
  3. COUMADIN [Concomitant]
     Route: 048

REACTIONS (4)
  - ANGINA UNSTABLE [None]
  - CHRONIC OBSTRUCTIVE PULMONARY DISEASE [None]
  - FLUID RETENTION [None]
  - TENDON RUPTURE [None]
